FAERS Safety Report 8519418-0 (Version None)
Quarter: 2012Q3

REPORT INFORMATION
  Report Type: 
  Country: None (occurrence: None)
  Receive Date: 20120718
  Receipt Date: 20120709
  Transmission Date: 20120928
  Serious: Yes (Hospitalization)
  Sender: FDA-Public Use
  Company Number: FR-TEVA-348391ISR

PATIENT
  Age: 23 Year
  Sex: Male

DRUGS (2)
  1. TRAMADOL LP 100 MG [Concomitant]
     Indication: NEURALGIA
     Dosage: 2 DOSAGE FORMS;
     Dates: start: 20100101
  2. FENTANYL CITRATE [Suspect]
     Indication: NEURALGIA
     Dosage: 600 MICROGRAM;
     Route: 002
     Dates: start: 20100101

REACTIONS (3)
  - CONFUSIONAL STATE [None]
  - DIZZINESS [None]
  - OFF LABEL USE [None]
